FAERS Safety Report 22247702 (Version 7)
Quarter: 2024Q2

REPORT INFORMATION
  Report Type: Report from Study
  Country: US (occurrence: US)
  Receive Date: 20230425
  Receipt Date: 20240401
  Transmission Date: 20240716
  Serious: Yes (Other)
  Sender: FDA-Public Use
  Company Number: US-ABBVIE-4736305

PATIENT
  Sex: Female

DRUGS (7)
  1. SKYRIZI [Suspect]
     Active Substance: RISANKIZUMAB-RZAA
     Indication: Crohn^s disease
     Dosage: WEEK 12?FORM STRENGTH: 360 MILLIGRAM
     Route: 058
     Dates: start: 20230503, end: 20230503
  2. SKYRIZI [Suspect]
     Active Substance: RISANKIZUMAB-RZAA
     Indication: Ankylosing spondylitis
     Dosage: WEEK 20 FORM STRENGTH: 360 MILLIGRAM, FORM STRENGTH 2.4 MILLILITRE(S)
     Route: 058
     Dates: start: 20230628, end: 20230628
  3. SKYRIZI [Suspect]
     Active Substance: RISANKIZUMAB-RZAA
     Indication: Rheumatoid arthritis
     Dosage: FORM STRENGTH 2.4 MILLILITRE(S)
     Route: 058
     Dates: start: 20230828, end: 20231218
  4. SKYRIZI [Suspect]
     Active Substance: RISANKIZUMAB-RZAA
     Indication: Psoriatic arthropathy
  5. SKYRIZI [Suspect]
     Active Substance: RISANKIZUMAB-RZAA
     Indication: Crohn^s disease
     Dosage: WEEK 0, FORM STRENGTH 600 MG
     Route: 042
     Dates: start: 20230205, end: 20230205
  6. SKYRIZI [Suspect]
     Active Substance: RISANKIZUMAB-RZAA
     Indication: Crohn^s disease
     Dosage: WEEK 4, FORM STRENGTH 600 MG
     Route: 042
     Dates: start: 20230305, end: 20230305
  7. SKYRIZI [Suspect]
     Active Substance: RISANKIZUMAB-RZAA
     Indication: Crohn^s disease
     Dosage: WEEK 8, FORM STRENGTH 600 MG
     Route: 058
     Dates: start: 20230405, end: 20230405

REACTIONS (17)
  - Hepatic cirrhosis [Not Recovered/Not Resolved]
  - Vertebral osteophyte [Unknown]
  - Therapeutic product effect decreased [Not Recovered/Not Resolved]
  - Drug ineffective [Not Recovered/Not Resolved]
  - Constipation [Not Recovered/Not Resolved]
  - Haematochezia [Not Recovered/Not Resolved]
  - Abdominal pain [Not Recovered/Not Resolved]
  - Hyperhidrosis [Recovering/Resolving]
  - Frequent bowel movements [Not Recovered/Not Resolved]
  - Arthralgia [Not Recovered/Not Resolved]
  - Neck pain [Unknown]
  - Spinal operation [Unknown]
  - Arthralgia [Unknown]
  - Condition aggravated [Unknown]
  - Joint stiffness [Not Recovered/Not Resolved]
  - Blood glucose increased [Unknown]
  - Spondylitis [Unknown]

NARRATIVE: CASE EVENT DATE: 20230101
